FAERS Safety Report 6244469-9 (Version None)
Quarter: 2009Q2

REPORT INFORMATION
  Report Type: 
  Country: None (occurrence: None)
  Receive Date: 20090625
  Receipt Date: 20090616
  Transmission Date: 20091009
  Serious: Yes (Other)
  Sender: FDA-Public Use
  Company Number: US-WYE-H09767109

PATIENT
  Sex: Female

DRUGS (1)
  1. PROTONIX [Suspect]
     Dosage: UNKNOWN
     Route: 042

REACTIONS (2)
  - REACTION TO DRUG EXCIPIENTS [None]
  - RESPIRATORY DISTRESS [None]
